FAERS Safety Report 13328859 (Version 1)
Quarter: 2017Q1

REPORT INFORMATION
  Report Type: Spontaneous
  Country: US (occurrence: US)
  Receive Date: 20170312
  Receipt Date: 20170312
  Transmission Date: 20170428
  Serious: Yes (Hospitalization, Disabling)
  Sender: FDA-Public Use
  Company Number: None

PATIENT
  Age: 59 Year
  Sex: Female
  Weight: 90 kg

DRUGS (4)
  1. HUMIRA [Suspect]
     Active Substance: ADALIMUMAB
     Indication: PSORIATIC ARTHROPATHY
     Dosage: ?          QUANTITY:1 INJECTION(S);OTHER FREQUENCY:Q 2 WKS;?
     Route: 058
     Dates: end: 20161223
  2. KEPPRA [Concomitant]
     Active Substance: LEVETIRACETAM
  3. VITAMIN D [Concomitant]
     Active Substance: CHOLECALCIFEROL
  4. COZAAR [Concomitant]
     Active Substance: LOSARTAN POTASSIUM

REACTIONS (4)
  - Generalised tonic-clonic seizure [None]
  - Head injury [None]
  - Concussion [None]
  - Impaired driving ability [None]

NARRATIVE: CASE EVENT DATE: 20161130
